FAERS Safety Report 20881667 (Version 1)
Quarter: 2022Q2

REPORT INFORMATION
  Report Type: Spontaneous
  Country: GB (occurrence: GB)
  Receive Date: 20220527
  Receipt Date: 20220527
  Transmission Date: 20220721
  Serious: Yes (Other)
  Sender: FDA-Public Use
  Company Number: GB-MHRA-MED-202205171151193440-SNPIT

PATIENT

DRUGS (10)
  1. PREDNISOLONE [Suspect]
     Active Substance: PREDNISOLONE
     Indication: Rash
     Dosage: TABLET, 30 MG, QD (30MG ONCE A DAY FOR 5 DAYS)
     Dates: start: 20220504, end: 20220509
  2. HYDROCORTISONE [Suspect]
     Active Substance: HYDROCORTISONE
     Indication: Arthropod bite
     Dosage: UNK
     Dates: start: 20180801, end: 20210901
  3. MICONAZOLE [Suspect]
     Active Substance: MICONAZOLE
     Indication: Rash
     Dosage: UNK, BID (TWICE A DAY)
     Dates: start: 20220419, end: 20220428
  4. HYDROCORTISONE [Suspect]
     Active Substance: HYDROCORTISONE
     Indication: Rash
     Dosage: UNK, BID (TWICE A DAY)
     Dates: start: 20220419, end: 20220428
  5. ACCORD-UK ACICLOVIR [Concomitant]
     Indication: Eczema herpeticum
     Dosage: UNK
     Dates: start: 20220420, end: 20220515
  6. CLARITHROMYCIN [Concomitant]
     Active Substance: CLARITHROMYCIN
     Indication: Skin infection
     Dosage: UNK
     Dates: end: 20220515
  7. AMOXICILLIN\CLAVULANATE POTASSIUM [Concomitant]
     Active Substance: AMOXICILLIN\CLAVULANATE POTASSIUM
     Indication: Skin infection
     Dosage: UNK
  8. FEXOFENADINE [Concomitant]
     Active Substance: FEXOFENADINE HYDROCHLORIDE
     Indication: Pruritus
     Dosage: UNK
     Dates: start: 20220427
  9. NAPROXEN [Concomitant]
     Active Substance: NAPROXEN
     Indication: Dermatitis
     Dosage: UNK
     Dates: end: 20220515
  10. SERTRALINE [Concomitant]
     Active Substance: SERTRALINE HYDROCHLORIDE
     Indication: Depressed mood
     Dosage: UNK
     Dates: start: 20220329

REACTIONS (10)
  - Skin burning sensation [Not Recovered/Not Resolved]
  - Sensitive skin [Not Recovered/Not Resolved]
  - Skin exfoliation [Not Recovered/Not Resolved]
  - Erythema [Not Recovered/Not Resolved]
  - Skin weeping [Not Recovered/Not Resolved]
  - Skin swelling [Recovering/Resolving]
  - Skin infection [Recovered/Resolved]
  - Pruritus [Not Recovered/Not Resolved]
  - Rash pruritic [Not Recovered/Not Resolved]
  - Medication error [Unknown]

NARRATIVE: CASE EVENT DATE: 20220110
